FAERS Safety Report 25664090 (Version 1)
Quarter: 2025Q3

REPORT INFORMATION
  Report Type: Spontaneous
  Country: US (occurrence: None)
  Receive Date: 20250808
  Receipt Date: 20250808
  Transmission Date: 20251021
  Serious: Yes (Death, Life-Threatening, Hospitalization)
  Sender: FDA-CTU
  Company Number: None

PATIENT
  Age: 81 Year
  Sex: Female

DRUGS (1)
  1. KEYTRUDA [Suspect]
     Active Substance: PEMBROLIZUMAB
     Indication: Squamous cell carcinoma of the oral cavity
     Dates: start: 20250612, end: 20250612

REACTIONS (5)
  - Dyspnoea [None]
  - Fatigue [None]
  - Asthenia [None]
  - Condition aggravated [None]
  - Respiratory failure [None]

NARRATIVE: CASE EVENT DATE: 20250612
